FAERS Safety Report 6573271-3 (Version None)
Quarter: 2010Q1

REPORT INFORMATION
  Report Type: 
  Country: None (occurrence: None)
  Receive Date: 20100208
  Receipt Date: 20100204
  Transmission Date: 20100710
  Serious: Yes (Other)
  Sender: FDA-Public Use
  Company Number: CH-BRISTOL-MYERS SQUIBB COMPANY-14948509

PATIENT
  Age: 69 Year
  Sex: Female

DRUGS (2)
  1. TAXOL [Suspect]
     Indication: BREAST CANCER
     Dosage: INITIATED AT 180MG, RECEIVED ON 18,25NOV,9,16,30DEC09:135MG, INTRUPTED AND RESTARTED AT 100MG ON
     Route: 042
     Dates: start: 20091028
  2. MARCUMAR [Suspect]

REACTIONS (2)
  - FEBRILE NEUTROPENIA [None]
  - LEUKOCYTOCLASTIC VASCULITIS [None]
